FAERS Safety Report 9466687 (Version 1)
Quarter: 2013Q3

REPORT INFORMATION
  Report Type: Report from Study
  Country: BE (occurrence: BE)
  Receive Date: 20130820
  Receipt Date: 20130820
  Transmission Date: 20140515
  Serious: Yes (Hospitalization, Other)
  Sender: FDA-Public Use
  Company Number: BE-AMGEN-BELCT2013057960

PATIENT
  Age: 67 Year
  Sex: Male
  Weight: 71 kg

DRUGS (5)
  1. ETANERCEPT [Suspect]
     Indication: RHEUMATOID ARTHRITIS
     Dosage: 25 MG, 2 TIMES/WK
     Route: 058
     Dates: start: 20030325, end: 20060606
  2. CELEBREX [Concomitant]
     Dosage: UNK
     Route: 048
     Dates: start: 20020807
  3. FOLIC ACID [Concomitant]
     Dosage: UNK
     Route: 048
     Dates: start: 20030808
  4. LEDERTREXATE                       /00113801/ [Concomitant]
     Dosage: UNK
     Route: 065
     Dates: start: 20030808
  5. MEDROL                             /00049601/ [Concomitant]
     Dosage: UNK
     Route: 048

REACTIONS (1)
  - Large cell lung cancer stage II [Recovered/Resolved]
